FAERS Safety Report 9426345 (Version 1)
Quarter: 2013Q3

REPORT INFORMATION
  Report Type: Spontaneous
  Country: US (occurrence: None)
  Receive Date: 20130729
  Receipt Date: 20130729
  Transmission Date: 20140515
  Serious: Yes (Death)
  Sender: FDA-Public Use
  Company Number: None

PATIENT
  Age: 55 Year
  Sex: Male

DRUGS (5)
  1. OLANZAPINE PAMOATE [Suspect]
     Indication: SCHIZOPHRENIA
  2. QUETIAPINE FUMARATE [Concomitant]
  3. HYDROXYZINE [Concomitant]
  4. FLUOXETINE HYDROCHLORIDE [Concomitant]
  5. LITHIUM [Concomitant]

REACTIONS (1)
  - Cardiomegaly [None]
